FAERS Safety Report 6259538-7 (Version None)
Quarter: 2009Q3

REPORT INFORMATION
  Report Type: 
  Country: None (occurrence: None)
  Receive Date: 20090706
  Receipt Date: 20090706
  Transmission Date: 20100115
  Serious: Yes (Other)
  Sender: FDA-Public Use
  Company Number: None

PATIENT
  Age: 36 Year
  Sex: Female
  Weight: 74.8435 kg

DRUGS (1)
  1. MACROBID [Suspect]
     Indication: URINARY TRACT INFECTION
     Dosage: 100 MYL 1 CAP 2X A DAY FOR 7 DAYS 1 CAP 2X DA FOR DAYS HAVE TAKE IN THE PAST WITH NO PROBLE
     Dates: start: 20090623, end: 20090629

REACTIONS (2)
  - TONGUE DISORDER [None]
  - URTICARIA [None]
